FAERS Safety Report 6627791-3 (Version None)
Quarter: 2010Q1

REPORT INFORMATION
  Report Type: 
  Country: None (occurrence: None)
  Receive Date: 20100308
  Receipt Date: 20100222
  Transmission Date: 20100710
  Serious: Yes (Other)
  Sender: FDA-Public Use
  Company Number: FABR-1001056

PATIENT
  Age: 37 Year
  Sex: Male
  Weight: 70 kg

DRUGS (1)
  1. FABRAZYME [Suspect]
     Indication: FABRY'S DISEASE
     Dosage: 35 MG, Q2W, INTRAVENOUS, 70 MG, 1X/W, INTRAVENOUS
     Route: 042
     Dates: start: 20040501

REACTIONS (2)
  - BLINDNESS TRANSIENT [None]
  - BLOOD GLUCOSE INCREASED [None]
